FAERS Safety Report 4283315-X (Version None)
Quarter: 2004Q1

REPORT INFORMATION
  Report Type: 
  Country: None (occurrence: None)
  Receive Date: 20040114
  Receipt Date: 20031006
  Transmission Date: 20041129
  Serious: Yes (Other)
  Sender: FDA-Public Use
  Company Number: BIVUS030088

PATIENT
  Sex: Female

DRUGS (3)
  1. ANGIOMAX [Suspect]
     Indication: ANTICOAGULANT THERAPY
     Dates: start: 20030101, end: 20030101
  2. ANGIOMAX [Suspect]
     Indication: STENT PLACEMENT
     Dates: start: 20030101, end: 20030101
  3. PLAVIX [Concomitant]

REACTIONS (2)
  - CORONARY ARTERY THROMBOSIS [None]
  - MYOCARDIAL INFARCTION [None]
